FAERS Safety Report 7182783-3 (Version None)
Quarter: 2010Q4

REPORT INFORMATION
  Report Type: 
  Country: None (occurrence: None)
  Receive Date: 20101221
  Receipt Date: 20101119
  Transmission Date: 20110411
  Serious: No
  Sender: FDA-Public Use
  Company Number: US-AMGEN-KDL412413

PATIENT

DRUGS (1)
  1. ENBREL [Suspect]
     Indication: RHEUMATOID ARTHRITIS
     Dosage: 50 MG, QWK
     Route: 058
     Dates: start: 20080303

REACTIONS (16)
  - ARTHRALGIA [None]
  - COUGH [None]
  - DIZZINESS [None]
  - FATIGUE [None]
  - LARYNGITIS [None]
  - MALAISE [None]
  - MOBILITY DECREASED [None]
  - ORTHOSIS USER [None]
  - PAIN [None]
  - PHOTOPSIA [None]
  - RESPIRATORY TRACT CONGESTION [None]
  - THROAT IRRITATION [None]
  - TOOTH EXTRACTION [None]
  - VISUAL ACUITY REDUCED [None]
  - VITREOUS FLOATERS [None]
  - WALKING AID USER [None]
